FAERS Safety Report 9669221 (Version 1)
Quarter: 2013Q4

REPORT INFORMATION
  Report Type: Spontaneous
  Country: IN (occurrence: IN)
  Receive Date: 20131105
  Receipt Date: 20131105
  Transmission Date: 20140711
  Serious: Yes (Life-Threatening, Other)
  Sender: FDA-Public Use
  Company Number: IN-ROXANE LABORATORIES, INC.-2013-RO-01758RO

PATIENT
  Age: 35 Year
  Sex: Male

DRUGS (5)
  1. SERTRALINE [Suspect]
     Indication: OBSESSIVE-COMPULSIVE DISORDER
     Dosage: 200 MG
  2. SERTRALINE [Suspect]
     Dosage: 400 MG
  3. LITHIUM CARBONATE [Suspect]
     Indication: OBSESSIVE-COMPULSIVE DISORDER
     Dosage: 800 MG
  4. RISPERIDONE [Suspect]
     Indication: OBSESSIVE-COMPULSIVE DISORDER
     Dosage: 2 MG
  5. CLOMIPRAMINE [Suspect]
     Indication: OBSESSIVE-COMPULSIVE DISORDER
     Dosage: 225 MG

REACTIONS (3)
  - Serotonin syndrome [Recovered/Resolved]
  - Hallucination, auditory [Recovered/Resolved]
  - Drug ineffective [Recovered/Resolved]
